FAERS Safety Report 14890064 (Version 1)
Quarter: 2018Q2

REPORT INFORMATION
  Report Type: Spontaneous
  Country: US (occurrence: US)
  Receive Date: 20180514
  Receipt Date: 20180514
  Transmission Date: 20180711
  Serious: Yes (Death, Hospitalization, Other)
  Sender: FDA-Public Use
  Company Number: US-KITE, A GILEAD COMPANY-2047695

PATIENT
  Age: 24 Year
  Sex: Female

DRUGS (1)
  1. YESCARTA [Suspect]
     Active Substance: AXICABTAGENE CILOLEUCEL
     Indication: DIFFUSE LARGE B-CELL LYMPHOMA
     Route: 042
     Dates: start: 20180402, end: 20180402

REACTIONS (13)
  - Encephalopathy [Recovered/Resolved]
  - Thrombocytopenia [Unknown]
  - Hypotension [Unknown]
  - Encephalopathy [Recovered/Resolved]
  - Abdominal pain [Unknown]
  - Lung infiltration [Unknown]
  - Cardiac arrest [Unknown]
  - Ventricular fibrillation [Unknown]
  - Hypoxia [Unknown]
  - Disseminated intravascular coagulation [Unknown]
  - Septic shock [Fatal]
  - Cytokine release syndrome [Recovered/Resolved]
  - Supraventricular tachycardia [Unknown]

NARRATIVE: CASE EVENT DATE: 20180404
